FAERS Safety Report 5626077-3 (Version None)
Quarter: 2008Q1

REPORT INFORMATION
  Report Type: 
  Country: None (occurrence: None)
  Receive Date: 20080214
  Receipt Date: 20080211
  Transmission Date: 20080703
  Serious: Yes (Death, Other)
  Sender: FDA-Public Use
  Company Number: ES-BRISTOL-MYERS SQUIBB COMPANY-14071831

PATIENT
  Age: 60 Year
  Sex: Female

DRUGS (3)
  1. CYCLOPHOSPHAMIDE [Suspect]
     Indication: LYMPHOMA
  2. FLUDARA [Suspect]
     Indication: LYMPHOMA
  3. RITUXIMAB [Suspect]
     Indication: LYMPHOMA

REACTIONS (2)
  - ACUTE MYELOID LEUKAEMIA [None]
  - DEATH [None]
